FAERS Safety Report 25986614 (Version 2)
Quarter: 2025Q4

REPORT INFORMATION
  Report Type: Spontaneous
  Country: EU (occurrence: EU)
  Receive Date: 20251101
  Receipt Date: 20251227
  Transmission Date: 20260118
  Serious: Yes (Other)
  Sender: ACCORD
  Company Number: None

PATIENT
  Age: 68 Year
  Sex: Male

DRUGS (5)
  1. TEMOZOLOMIDE [Suspect]
     Active Substance: TEMOZOLOMIDE
     Indication: Central nervous system neoplasm
     Dosage: 1 TABLET 250 MG DAILY FOR 5 DAYS
     Dates: start: 20250303
  2. NORVASC [Concomitant]
     Active Substance: AMLODIPINE BESYLATE
     Indication: Hypertension
     Dosage: 1 TABLET DAILY
     Dates: start: 20180912
  3. ONDANSETRON [Concomitant]
     Active Substance: ONDANSETRON
     Indication: Nausea
     Dosage: 1 DAY ON TEMOZOLOMIDE DAYS
     Dates: start: 202503
  4. HYDROCHLOROTHIAZIDE\RAMIPRIL [Concomitant]
     Active Substance: HYDROCHLOROTHIAZIDE\RAMIPRIL
     Indication: Hypertension
     Dosage: 1 TABLET DAILY
     Dates: start: 20230709
  5. VALPROATE SODIUM [Concomitant]
     Active Substance: VALPROATE SODIUM
     Indication: Epilepsy
     Dosage: 1 TABLET DAILY
     Dates: start: 20250314

REACTIONS (4)
  - Toothache [Recovered/Resolved]
  - Tremor [Recovered/Resolved]
  - Haematochezia [Recovered/Resolved]
  - Hyperuricaemia [Recovered/Resolved]

NARRATIVE: CASE EVENT DATE: 20250708
